FAERS Safety Report 18473006 (Version 1)
Quarter: 2020Q4

REPORT INFORMATION
  Report Type: Spontaneous
  Country: US (occurrence: US)
  Receive Date: 20201105
  Receipt Date: 20201105
  Transmission Date: 20210114
  Serious: Yes (Other)
  Sender: FDA-Public Use
  Company Number: None

PATIENT
  Age: 43 Year
  Sex: Female
  Weight: 67.5 kg

DRUGS (1)
  1. AIMOVIG [Suspect]
     Active Substance: ERENUMAB-AOOE
     Indication: MIGRAINE
     Dosage: ?          OTHER STRENGTH:NG/ML;QUANTITY:1 INJECTION(S);OTHER FREQUENCY:1 MONTHLY;?
     Route: 030
     Dates: start: 20190101, end: 20201105

REACTIONS (5)
  - Muscle spasms [None]
  - Myalgia [None]
  - Chills [None]
  - Confusional state [None]
  - Dizziness [None]

NARRATIVE: CASE EVENT DATE: 20201104
